FAERS Safety Report 20898204 (Version 1)
Quarter: 2022Q2

REPORT INFORMATION
  Report Type: Report from Study
  Country: SE (occurrence: SE)
  Receive Date: 20220531
  Receipt Date: 20220531
  Transmission Date: 20220721
  Serious: Yes (Hospitalization)
  Sender: FDA-Public Use
  Company Number: SE-ABBVIE-21K-150-3945969-00

PATIENT
  Sex: Female

DRUGS (2)
  1. CARBIDOPA\LEVODOPA [Suspect]
     Active Substance: CARBIDOPA\LEVODOPA
     Indication: Parkinson^s disease
     Route: 050
     Dates: start: 20200922
  2. CARBIDOPA\LEVODOPA [Suspect]
     Active Substance: CARBIDOPA\LEVODOPA

REACTIONS (10)
  - Knee operation [Recovered/Resolved]
  - Medical device site pain [Recovered/Resolved]
  - Device deployment issue [Unknown]
  - Food craving [Unknown]
  - Arthralgia [Not Recovered/Not Resolved]
  - Decreased activity [Unknown]
  - COVID-19 [Recovered/Resolved]
  - Weight increased [Recovered/Resolved]
  - Weight increased [Unknown]
  - Stoma site erythema [Not Recovered/Not Resolved]

NARRATIVE: CASE EVENT DATE: 20200101
